FAERS Safety Report 5644562-5 (Version None)
Quarter: 2008Q1

REPORT INFORMATION
  Report Type: 
  Country: None (occurrence: None)
  Receive Date: 20080229
  Receipt Date: 20070307
  Transmission Date: 20080703
  Serious: No
  Sender: FDA-Public Use
  Company Number: A0642224A

PATIENT
  Sex: Female

DRUGS (4)
  1. VALTREX [Suspect]
     Indication: GENITAL HERPES
     Dosage: 500MG PER DAY
     Route: 048
     Dates: start: 19990101
  2. ZOVIRAX [Suspect]
     Indication: GENITAL HERPES
     Dosage: 400MG TWICE PER DAY
     Route: 048
  3. BIRTH CONTROL [Concomitant]
  4. MULTI-VITAMIN [Concomitant]

REACTIONS (2)
  - DISCOMFORT [None]
  - DRUG INEFFECTIVE [None]
